FAERS Safety Report 20095096 (Version 2)
Quarter: 2022Q1

REPORT INFORMATION
  Report Type: Spontaneous
  Country: JP (occurrence: JP)
  Receive Date: 20211122
  Receipt Date: 20220218
  Transmission Date: 20220423
  Serious: Yes (Other)
  Sender: FDA-Public Use
  Company Number: JP-MSD-M2021-18732

PATIENT
  Age: 69 Year
  Sex: Male
  Weight: 52 kg

DRUGS (2)
  1. KEYTRUDA [Suspect]
     Active Substance: PEMBROLIZUMAB
     Indication: Non-small cell lung cancer stage IV
     Dosage: 200 MILLIGRAM, Q3W
     Route: 041
     Dates: start: 20190913, end: 2020
  2. KEYTRUDA [Suspect]
     Active Substance: PEMBROLIZUMAB
     Dosage: 200 MILLIGRAM, Q3W
     Route: 041
     Dates: start: 20200508, end: 20200710

REACTIONS (2)
  - Malignant neoplasm progression [Unknown]
  - Interstitial lung disease [Recovering/Resolving]

NARRATIVE: CASE EVENT DATE: 20200409
